FAERS Safety Report 6604597-2 (Version None)
Quarter: 2010Q1

REPORT INFORMATION
  Report Type: 
  Country: None (occurrence: None)
  Receive Date: 20100226
  Receipt Date: 20091216
  Transmission Date: 20100710
  Serious: No
  Sender: FDA-Public Use
  Company Number: A0835439A

PATIENT
  Age: 57 Year
  Sex: Male

DRUGS (7)
  1. LAMICTAL CD [Suspect]
     Indication: BIPOLAR DISORDER
     Dosage: 25MG PER DAY
     Route: 048
     Dates: start: 20091210
  2. CELEXA [Concomitant]
  3. MIRTAZAPINE [Concomitant]
  4. GABAPENTIN [Concomitant]
  5. BENICAR [Concomitant]
  6. LOVASTATIN [Concomitant]
  7. METOPROLOL TARTRATE [Concomitant]

REACTIONS (1)
  - RASH [None]
